FAERS Safety Report 19233471 (Version 14)
Quarter: 2022Q4

REPORT INFORMATION
  Report Type: Report from Study
  Country: NL (occurrence: NL)
  Receive Date: 20210507
  Receipt Date: 20221026
  Transmission Date: 20230113
  Serious: Yes (Hospitalization)
  Sender: FDA-Public Use
  Company Number: NL-GLAXOSMITHKLINE-NL2020GSK247224

PATIENT

DRUGS (16)
  1. DOSTARLIMAB [Suspect]
     Active Substance: DOSTARLIMAB
     Indication: Endometrial cancer recurrent
     Dosage: 500 MG
     Route: 042
     Dates: start: 20201106, end: 20201106
  2. DOSTARLIMAB [Suspect]
     Active Substance: DOSTARLIMAB
     Dosage: 500 MG
     Route: 042
     Dates: start: 20201127, end: 20201127
  3. CARBOPLATIN [Suspect]
     Active Substance: CARBOPLATIN
     Indication: Endometrial cancer recurrent
     Dosage: 5 AUC
     Route: 042
     Dates: start: 20201106, end: 20201106
  4. CARBOPLATIN [Suspect]
     Active Substance: CARBOPLATIN
     Dosage: 600 AUC
     Route: 042
     Dates: start: 20201127, end: 20201127
  5. PACLITAXEL [Suspect]
     Active Substance: PACLITAXEL
     Indication: Endometrial cancer recurrent
     Dosage: 175 MG/M2
     Route: 042
     Dates: start: 20201106, end: 20201106
  6. PACLITAXEL [Suspect]
     Active Substance: PACLITAXEL
     Dosage: 175 MG/M2
     Route: 042
     Dates: start: 20201127, end: 20201127
  7. FLUCONAZOLE [Concomitant]
     Active Substance: FLUCONAZOLE
     Indication: Skin candida
     Dosage: 100 MG, QD
     Route: 048
     Dates: start: 20201116, end: 20201130
  8. CICLOPIROX [Concomitant]
     Active Substance: CICLOPIROX
     Indication: Skin candida
     Dosage: 10 MG/G
     Route: 061
     Dates: start: 20201116, end: 20210121
  9. METFORMIN [Concomitant]
     Active Substance: METFORMIN HYDROCHLORIDE
     Indication: Hyperglycaemia
     Dosage: 1000 MG, BID
     Route: 048
     Dates: start: 20201126, end: 20210121
  10. CLINDAMYCIN [Concomitant]
     Active Substance: CLINDAMYCIN
     Indication: Rash
     Dosage: 10MG/ML, QD
     Route: 061
     Dates: start: 20201207, end: 20201231
  11. CLINDAMYCIN [Concomitant]
     Active Substance: CLINDAMYCIN
     Dosage: 10MG/ML, QD
     Route: 058
     Dates: start: 20201229, end: 20201231
  12. ASPIRIN [Concomitant]
     Active Substance: ASPIRIN
     Indication: Pain
     Dosage: UNK
  13. DEXAMETHASONE [Concomitant]
     Active Substance: DEXAMETHASONE
     Indication: Product used for unknown indication
     Dosage: UNK
  14. POLYETHYLENE GLYCOLS [Concomitant]
     Active Substance: POLYETHYLENE GLYCOLS
     Indication: Product used for unknown indication
     Dosage: UNK
  15. METOCLOPRAMIDE [Concomitant]
     Active Substance: METOCLOPRAMIDE
     Indication: Product used for unknown indication
     Dosage: UNK
  16. LOSARTAN [Concomitant]
     Active Substance: LOSARTAN
     Indication: Product used for unknown indication
     Dosage: UNK

REACTIONS (1)
  - Myocarditis [Recovered/Resolved with Sequelae]

NARRATIVE: CASE EVENT DATE: 20201213
